FAERS Safety Report 5683885-0 (Version None)
Quarter: 2008Q1

REPORT INFORMATION
  Report Type: 
  Country: None (occurrence: None)
  Receive Date: 20080327
  Receipt Date: 20080327
  Transmission Date: 20080703
  Serious: Yes (Life-Threatening)
  Sender: FDA-Public Use
  Company Number: None

PATIENT
  Age: 17 Year
  Sex: Female
  Weight: 49.8957 kg

DRUGS (2)
  1. LAMICTAL [Suspect]
     Indication: CONVULSION
     Dosage: 100MG DAILY PO
     Route: 048
  2. DEPAKOTE [Suspect]
     Indication: IMPULSE-CONTROL DISORDER
     Dosage: 125  DAILY  PO
     Route: 048

REACTIONS (1)
  - STEVENS-JOHNSON SYNDROME [None]
